FAERS Safety Report 9623648 (Version 1)
Quarter: 2013Q4

REPORT INFORMATION
  Report Type: Spontaneous
  Country: FR (occurrence: FR)
  Receive Date: 20131015
  Receipt Date: 20131015
  Transmission Date: 20140711
  Serious: Yes (Hospitalization)
  Sender: FDA-Public Use
  Company Number: FR-ASTRAZENECA-2013SE74863

PATIENT
  Age: 22938 Day
  Sex: Male

DRUGS (12)
  1. CRESTOR [Suspect]
     Indication: DYSLIPIDAEMIA
     Route: 048
     Dates: end: 20130909
  2. KEPRA [Suspect]
     Indication: PARTIAL SEIZURES
     Route: 048
     Dates: start: 20130804, end: 20130819
  3. KEPRA [Suspect]
     Indication: PARTIAL SEIZURES
     Route: 048
     Dates: start: 20130819, end: 20130902
  4. KARDEGIC [Concomitant]
  5. SMECTA [Concomitant]
  6. ATARAX [Concomitant]
     Dosage: 25 MG DAILY IF NEEDED
  7. MESTINON [Concomitant]
  8. IMODIUM [Concomitant]
  9. SPECIAFOLDINE [Concomitant]
  10. DIFFU-K [Concomitant]
  11. DOLIPRANE [Concomitant]
  12. FLUOXETINE [Concomitant]
     Route: 048
     Dates: start: 20130805, end: 20130809

REACTIONS (5)
  - Hepatocellular injury [Not Recovered/Not Resolved]
  - Cholestasis [Not Recovered/Not Resolved]
  - Radiation injury [Unknown]
  - Hydrocephalus [Unknown]
  - Inflammation [Unknown]
